FAERS Safety Report 9172060 (Version 2)
Quarter: 2013Q1

REPORT INFORMATION
  Report Type: Spontaneous
  Country: US (occurrence: US)
  Receive Date: 20130319
  Receipt Date: 20130327
  Transmission Date: 20140127
  Serious: Yes (Other)
  Sender: FDA-Public Use
  Company Number: CHPA2010US06741

PATIENT
  Age: 78 Year
  Sex: Male
  Weight: 81.63 kg

DRUGS (5)
  1. VOLTAREN GEL [Suspect]
     Indication: OSTEOARTHRITIS
     Dosage: UNK, UNK
     Route: 061
     Dates: start: 20100413, end: 201212
  2. VOLTAREN GEL [Suspect]
     Indication: PRECANCEROUS SKIN LESION
  3. OCUVITE                            /01053801/ [Concomitant]
  4. ADVIL//IBUPROFEN [Concomitant]
  5. BIOFREEZE                          /01638601/ [Concomitant]

REACTIONS (7)
  - Musculoskeletal pain [Recovering/Resolving]
  - Muscle spasms [Recovering/Resolving]
  - Burning sensation [Recovered/Resolved]
  - Discomfort [Recovered/Resolved]
  - Precancerous cells present [Unknown]
  - Drug administered at inappropriate site [Unknown]
  - Wrong technique in drug usage process [Unknown]
